FAERS Safety Report 8907153 (Version 3)
Quarter: 2013Q1

REPORT INFORMATION
  Report Type: Spontaneous
  Country: US (occurrence: US)
  Receive Date: 20121114
  Receipt Date: 20130122
  Transmission Date: 20140127
  Serious: No
  Sender: FDA-Public Use
  Company Number: US-009507513-1211USA004697

PATIENT
  Age: 31 Year
  Sex: Female

DRUGS (1)
  1. PREGNYL [Suspect]
     Indication: MANAGEMENT OF REPRODUCTION

REACTIONS (1)
  - Drug ineffective [Unknown]
